FAERS Safety Report 25089666 (Version 1)
Quarter: 2025Q1

REPORT INFORMATION
  Report Type: Spontaneous
  Country: CO (occurrence: CO)
  Receive Date: 20250318
  Receipt Date: 20250318
  Transmission Date: 20250409
  Serious: Yes (Other)
  Sender: ALEXION PHARMACEUTICALS
  Company Number: CO-ASTRAZENECA-202503SAM010752CO

PATIENT
  Age: 66 Year
  Weight: 59 kg

DRUGS (5)
  1. FULVESTRANT [Suspect]
     Active Substance: FULVESTRANT
  2. FULVESTRANT [Suspect]
     Active Substance: FULVESTRANT
  3. TRASTUZUMAB DERUXTECAN [Suspect]
     Active Substance: TRASTUZUMAB DERUXTECAN
     Route: 065
  4. DOCETAXEL [Suspect]
     Active Substance: DOCETAXEL
  5. PERTUZUMAB [Suspect]
     Active Substance: PERTUZUMAB

REACTIONS (8)
  - Angina pectoris [Recovered/Resolved]
  - Diarrhoea [Recovered/Resolved]
  - Alopecia [Recovered/Resolved]
  - Conjunctivitis [Recovered/Resolved]
  - Peripheral sensory neuropathy [Recovered/Resolved]
  - Ejection fraction decreased [Recovered/Resolved]
  - Constipation [Recovered/Resolved]
  - Dry eye [Recovered/Resolved]
